FAERS Safety Report 8795458 (Version 1)
Quarter: 2012Q4

REPORT INFORMATION
  Report Type: 
  Country: US (occurrence: US)
  Receive Date: 20120917
  Receipt Date: 20120917
  Transmission Date: 20130627
  Serious: Yes (Death, Hospitalization)
  Sender: FDA-Public Use
  Company Number: US-GILEAD-2012-0061173

PATIENT
  Sex: Male

DRUGS (8)
  1. LETAIRIS [Suspect]
     Indication: PULMONARY HYPERTENSION
     Dosage: 5 mg, QD
     Route: 048
     Dates: start: 20120119, end: 201208
  2. EPOPROSTENOL SODIUM [Suspect]
     Dosage: UNK
     Dates: start: 201108
  3. REVATIO [Concomitant]
     Dosage: UNK
     Dates: start: 200906
  4. OXYGEN [Concomitant]
  5. SODIUM BICARBONATE [Concomitant]
  6. PRILOSEC                           /00661201/ [Concomitant]
  7. MORPHINE SULFATE [Concomitant]
  8. AMBIEN [Concomitant]

REACTIONS (2)
  - Death [Fatal]
  - Haematemesis [Unknown]
